FAERS Safety Report 6923090-0 (Version None)
Quarter: 2010Q3

REPORT INFORMATION
  Report Type: 
  Country: None (occurrence: None)
  Receive Date: 20100813
  Receipt Date: 20100802
  Transmission Date: 20110219
  Serious: Yes (Hospitalization)
  Sender: FDA-Public Use
  Company Number: US-ELI_LILLY_AND_COMPANY-US201008001934

PATIENT
  Sex: Female

DRUGS (12)
  1. FORTEO [Suspect]
     Indication: OSTEOPOROSIS
     Dosage: 20 UG, DAILY (1/D)
     Dates: start: 20100416
  2. CITRACAL [Concomitant]
     Dosage: 1 D/F, 2/D
  3. ASACOL [Concomitant]
     Dosage: 400 MG, 2/D
  4. POTASSIUM [Concomitant]
     Dosage: 10 MEQ, 2/D
  5. PREDNISONE [Concomitant]
     Dosage: 5 MG, DAILY (1/D)
  6. FOLIC ACID [Concomitant]
     Dosage: 1 UG, DAILY (1/D)
  7. XANAX [Concomitant]
     Dosage: 0.5 MG, AS NEEDED
  8. NEXIUM [Concomitant]
     Dosage: 40 MG, DAILY (1/D)
  9. EFFEXOR [Concomitant]
  10. PERCOCET [Concomitant]
     Dosage: 10/325 D/F, 1 TO 2 PILLS EVERY FOUR HOURS AS NEEDED
  11. SINTENYL [Concomitant]
     Dosage: 1000 UG, QOD
     Route: 062
  12. OXYGEN [Concomitant]
     Dosage: 1 D/F, AS NEEDED

REACTIONS (1)
  - ELECTROLYTE IMBALANCE [None]
